FAERS Safety Report 14457084 (Version 1)
Quarter: 2018Q1

REPORT INFORMATION
  Report Type: Report from Study
  Country: US (occurrence: US)
  Receive Date: 20180130
  Receipt Date: 20180130
  Transmission Date: 20180509
  Serious: Yes (Other)
  Sender: FDA-Public Use
  Company Number: US-JNJFOC-20180106199

PATIENT
  Age: 62 Year
  Sex: Female

DRUGS (1)
  1. INVOKANA [Suspect]
     Active Substance: CANAGLIFLOZIN
     Indication: PRODUCT USED FOR UNKNOWN INDICATION
     Route: 065
     Dates: start: 20131201, end: 20170630

REACTIONS (3)
  - Haemorrhage [Not Recovered/Not Resolved]
  - Weight decreased [Unknown]
  - Fungal infection [Unknown]

NARRATIVE: CASE EVENT DATE: 201706
